FAERS Safety Report 16252202 (Version 3)
Quarter: 2019Q3

REPORT INFORMATION
  Report Type: Spontaneous
  Country: JP (occurrence: JP)
  Receive Date: 20190429
  Receipt Date: 20190704
  Transmission Date: 20191004
  Serious: Yes (Other)
  Sender: FDA-Public Use
  Company Number: JP-REGENERON PHARMACEUTICALS, INC.-2019-29184

PATIENT

DRUGS (24)
  1. EYLEA [Suspect]
     Active Substance: AFLIBERCEPT
     Dosage: 0.05 ML, ONCE (LEFT EYE)
     Route: 031
     Dates: start: 20150206, end: 20150206
  2. EYLEA [Suspect]
     Active Substance: AFLIBERCEPT
     Dosage: 0.05 ML, ONCE (LEFT EYE)
     Route: 031
     Dates: start: 20160401, end: 20160401
  3. EYLEA [Suspect]
     Active Substance: AFLIBERCEPT
     Dosage: 0.05 ML, ONCE (LEFT EYE)
     Route: 031
     Dates: start: 20160623, end: 20160623
  4. EYLEA [Suspect]
     Active Substance: AFLIBERCEPT
     Dosage: 0.05 ML, ONCE (LEFT EYE)
     Route: 031
     Dates: start: 20160820, end: 20160820
  5. EYLEA [Suspect]
     Active Substance: AFLIBERCEPT
     Dosage: 0.05 ML, ONCE (LEFT EYE)
     Route: 031
     Dates: start: 20171212, end: 20171212
  6. EYLEA [Suspect]
     Active Substance: AFLIBERCEPT
     Dosage: 0.05 ML, ONCE (LEFT EYE)
     Route: 031
     Dates: start: 20180516, end: 20180516
  7. EYLEA [Suspect]
     Active Substance: AFLIBERCEPT
     Dosage: 0.05 ML, ONCE (LEFT EYE)
     Route: 031
     Dates: start: 20190424, end: 20190424
  8. EYLEA [Suspect]
     Active Substance: AFLIBERCEPT
     Dosage: 0.05 ML, ONCE (LEFT EYE)
     Route: 031
     Dates: start: 20190130, end: 20190130
  9. LUCENTIS [Concomitant]
     Active Substance: RANIBIZUMAB
     Indication: AGE-RELATED MACULAR DEGENERATION
     Dosage: 0.05 ML, ONCE (LEFT EYE)
     Route: 031
     Dates: start: 20150522, end: 20150522
  10. EYLEA [Suspect]
     Active Substance: AFLIBERCEPT
     Dosage: 0.05 ML, ONCE (LEFT EYE)
     Route: 031
     Dates: start: 20161028, end: 20161028
  11. EYLEA [Suspect]
     Active Substance: AFLIBERCEPT
     Dosage: 0.05 ML, ONCE (LEFT EYE)
     Route: 031
     Dates: start: 20170510, end: 20170510
  12. EYLEA [Suspect]
     Active Substance: AFLIBERCEPT
     Dosage: 0.05 ML, ONCE (LEFT EYE)
     Route: 031
     Dates: start: 20181129, end: 20181129
  13. EYLEA [Suspect]
     Active Substance: AFLIBERCEPT
     Indication: AGE-RELATED MACULAR DEGENERATION
     Dosage: 0.05 ML, ONCE (LEFT EYE)
     Route: 031
     Dates: start: 20141128, end: 20141128
  14. EYLEA [Suspect]
     Active Substance: AFLIBERCEPT
     Dosage: 0.05 ML, ONCE (LEFT EYE)
     Route: 031
     Dates: start: 20180608, end: 20180608
  15. EYLEA [Suspect]
     Active Substance: AFLIBERCEPT
     Dosage: 0.05 ML, ONCE (LEFT EYE)
     Route: 031
     Dates: start: 20161214, end: 20161214
  16. EYLEA [Suspect]
     Active Substance: AFLIBERCEPT
     Dosage: 0.05 ML, ONCE (LEFT EYE)
     Route: 031
     Dates: start: 20170403, end: 20170403
  17. EYLEA [Suspect]
     Active Substance: AFLIBERCEPT
     Dosage: 0.05 ML, ONCE (LEFT EYE)
     Route: 031
     Dates: start: 20180905, end: 20180905
  18. EYLEA [Suspect]
     Active Substance: AFLIBERCEPT
     Dosage: 0.05 ML, ONCE (LEFT EYE)
     Route: 031
     Dates: start: 20180223, end: 20180223
  19. EYLEA [Suspect]
     Active Substance: AFLIBERCEPT
     Dosage: 0.05 ML, ONCE (LEFT EYE)
     Route: 031
     Dates: start: 20181024, end: 20181024
  20. LUCENTIS [Concomitant]
     Active Substance: RANIBIZUMAB
     Dosage: 0.05 ML, ONCE (LEFT EYE)
     Route: 031
     Dates: start: 20150701, end: 20150701
  21. EYLEA [Suspect]
     Active Substance: AFLIBERCEPT
     Dosage: 0.05 ML, ONCE (LEFT EYE)
     Route: 031
     Dates: start: 20170726, end: 20170726
  22. EYLEA [Suspect]
     Active Substance: AFLIBERCEPT
     Dosage: 0.05 ML, ONCE (LEFT EYE)
     Route: 031
     Dates: start: 20171011, end: 20171011
  23. EYLEA [Suspect]
     Active Substance: AFLIBERCEPT
     Dosage: 0.05 ML, ONCE (LEFT EYE)
     Route: 031
     Dates: start: 20180718, end: 20180718
  24. LUCENTIS [Concomitant]
     Active Substance: RANIBIZUMAB
     Dosage: 0.05 ML, ONCE (LEFT EYE)
     Route: 031
     Dates: start: 20151207, end: 20151207

REACTIONS (1)
  - Parkinson^s disease [Unknown]

NARRATIVE: CASE EVENT DATE: 20180207
